FAERS Safety Report 8815185 (Version 1)
Quarter: 2012Q4

REPORT INFORMATION
  Report Type: 
  Country: US (occurrence: US)
  Receive Date: 20120928
  Receipt Date: 20120928
  Transmission Date: 20130627
  Serious: Yes (Life-Threatening, Hospitalization)
  Sender: FDA-Public Use
  Company Number: US-JNJFOC-20120910826

PATIENT
  Age: 75 Year
  Sex: Female
  Weight: 93.9 kg

DRUGS (2)
  1. XARELTO [Suspect]
     Indication: THROMBOSIS PROPHYLAXIS
     Route: 048
     Dates: start: 20120711, end: 20120712
  2. XARELTO [Suspect]
     Indication: HIP ARTHROPLASTY
     Route: 048
     Dates: start: 20120711, end: 20120712

REACTIONS (11)
  - Liver function test abnormal [Recovered/Resolved]
  - Acute respiratory failure [Unknown]
  - Anuria [Unknown]
  - Atrial fibrillation [Unknown]
  - Sepsis [Unknown]
  - Acute respiratory distress syndrome [Unknown]
  - Pancreatitis acute [Unknown]
  - Intestinal ischaemia [Unknown]
  - Cardiac failure congestive [Unknown]
  - Septic shock [Unknown]
  - Renal failure acute [Not Recovered/Not Resolved]
